FAERS Safety Report 15354304 (Version 1)
Quarter: 2018Q3

REPORT INFORMATION
  Report Type: Spontaneous
  Country: GB (occurrence: GB)
  Receive Date: 20180906
  Receipt Date: 20180906
  Transmission Date: 20181010
  Serious: Yes (Other)
  Sender: FDA-Public Use
  Company Number: PHHY2016GB187226

PATIENT
  Age: 45 Year
  Sex: Female

DRUGS (2)
  1. IRON [Concomitant]
     Active Substance: IRON
     Indication: IRON DEFICIENCY
     Dosage: UNK
     Route: 065
  2. TEGRETOL [Suspect]
     Active Substance: CARBAMAZEPINE
     Indication: PRODUCT USED FOR UNKNOWN INDICATION
     Dosage: 800 MG, QD
     Route: 065
     Dates: start: 2004

REACTIONS (11)
  - Abnormal behaviour [Unknown]
  - Cerebral atrophy [Unknown]
  - Depression [Unknown]
  - Dyspnoea [Unknown]
  - Urinary tract infection [Unknown]
  - Suicidal ideation [Unknown]
  - Myalgia [Unknown]
  - Drug interaction [Unknown]
  - Tonic convulsion [Unknown]
  - Headache [Unknown]
  - Aggression [Unknown]
